FAERS Safety Report 18443833 (Version 2)
Quarter: 2020Q4

REPORT INFORMATION
  Report Type: Report from Study
  Country: CN (occurrence: CN)
  Receive Date: 20201030
  Receipt Date: 20201112
  Transmission Date: 20210114
  Serious: Yes (Hospitalization)
  Sender: FDA-Public Use
  Company Number: CN-ROCHE-2702461

PATIENT
  Age: 65 Year
  Sex: Male
  Weight: 55 kg

DRUGS (30)
  1. ASPIRIN ENTERIC-COATED [Concomitant]
     Dates: start: 2018
  2. MONTMORILLONITE [Concomitant]
     Active Substance: MONTMORILLONITE
     Dates: start: 20201023, end: 20201023
  3. SODIUM BICARBONATE. [Concomitant]
     Active Substance: SODIUM BICARBONATE
     Dosage: TOTAL DAILY DOSE: AS NEEDED ML
     Dates: start: 20201026, end: 20201026
  4. COMPOUND SODIUM CHLORIDE [Concomitant]
     Dates: start: 20201024, end: 20201024
  5. OMEPRAZOLE. [Concomitant]
     Active Substance: OMEPRAZOLE
     Dates: start: 20201103
  6. LEUCOGEN TABLETS [Concomitant]
     Dosage: 1 UNIT NOT REPORTED 1 CAPSULE
     Dates: start: 20201021, end: 20201022
  7. ATORVASTATIN CALCIUM. [Concomitant]
     Active Substance: ATORVASTATIN CALCIUM
     Dates: start: 2018
  8. TICAGRELOR. [Concomitant]
     Active Substance: TICAGRELOR
     Dates: start: 2018
  9. SODIUM BICARBONATE. [Concomitant]
     Active Substance: SODIUM BICARBONATE
     Dosage: TOTAL DAILY DOSE: AS NEEDED ML
     Dates: start: 20201024, end: 20201024
  10. BERBERINE HYDROCHLORIDE [Concomitant]
     Active Substance: BERBERINE
     Dates: start: 20201023, end: 20201023
  11. ALBUMIN PREPARED FROM HUMAN PLASMA [Concomitant]
     Dates: start: 20201025, end: 20201028
  12. FUROSEMIDE. [Concomitant]
     Active Substance: FUROSEMIDE
     Dates: start: 20201027, end: 20201028
  13. CELECOXIB. [Concomitant]
     Active Substance: CELECOXIB
     Dates: start: 20201023, end: 20201023
  14. POTASSIUM CHLORIDE. [Concomitant]
     Active Substance: POTASSIUM CHLORIDE
     Dates: start: 20201023, end: 20201028
  15. POLYENE PHOSPHATIDYLCHOLINE [Concomitant]
     Active Substance: PHOSPHOLIPID
     Dates: start: 20201102, end: 20201102
  16. BICYCLOL [Concomitant]
     Active Substance: BICYCLOL
     Dates: start: 20201103
  17. ATEZOLIZUMAB. [Suspect]
     Active Substance: ATEZOLIZUMAB
     Indication: NON-SMALL CELL LUNG CANCER
     Dosage: MOST RECENT DOSE OF ATEZOLIZUMAB PRIOR TO AE ONSET 1200 MG ON 10/OCT/2020 AT 16:05?MOST RECENT DOSE
     Route: 041
     Dates: start: 20201010
  18. LOPERAMIDE HYDROCHLORIDE. [Concomitant]
     Active Substance: LOPERAMIDE HYDROCHLORIDE
     Dates: start: 20201024, end: 20201024
  19. CONCENTRATED SODIUM CHLORIDE [Concomitant]
     Active Substance: SODIUM CHLORIDE
     Dates: start: 20201027, end: 20201027
  20. REDUCED GLUTATHIONE SODIUM [Concomitant]
     Active Substance: GLUTATHIONE
     Dates: start: 20201103, end: 20201103
  21. RECOMBINANT HUMAN THROMBOPOIETIN [Concomitant]
     Active Substance: THROMBOPOIETIN
     Dosage: 15000 U
     Dates: start: 20201023, end: 20201027
  22. LEUCOGEN TABLETS [Concomitant]
     Dates: start: 20201025, end: 20201025
  23. METOPROLOL SUCCINATE. [Concomitant]
     Active Substance: METOPROLOL SUCCINATE
     Dates: start: 2018
  24. PANTOPRAZOLE SODIUM. [Concomitant]
     Active Substance: PANTOPRAZOLE SODIUM
     Dates: start: 20201023, end: 20201023
  25. LAMIVUDINE. [Concomitant]
     Active Substance: LAMIVUDINE
     Dates: start: 20201103
  26. BEVACIZUMAB. [Suspect]
     Active Substance: BEVACIZUMAB
     Indication: NON-SMALL CELL LUNG CANCER
     Dosage: MOST RECENT DOSE OF BEVACIZUMAB PRIOR TO AE/SAE ONSET 918 MG ?DATE OF MOST RECENT DOSE OF BEVACIZUMA
     Route: 042
     Dates: start: 20201010
  27. PROMETHAZINE HYDROCHLORIDE. [Concomitant]
     Active Substance: PROMETHAZINE HYDROCHLORIDE
     Dates: start: 20201023, end: 20201024
  28. RECOMBINANT HUMAN GRANULOCYTE COLONY-STIMULATING FACTOR INJECTION (REB [Concomitant]
     Dates: start: 20201025, end: 20201025
  29. COMPOUND GLYCYRRHIZIN INJECTION [Concomitant]
     Dates: start: 20201023, end: 20201103
  30. VITAMIN C [Concomitant]
     Active Substance: ASCORBIC ACID
     Dates: start: 20201023, end: 20201023

REACTIONS (1)
  - Upper respiratory tract infection [Not Recovered/Not Resolved]

NARRATIVE: CASE EVENT DATE: 20201017
